FAERS Safety Report 17352929 (Version 1)
Quarter: 2020Q1

REPORT INFORMATION
  Report Type: Spontaneous
  Country: US (occurrence: US)
  Receive Date: 20200131
  Receipt Date: 20200131
  Transmission Date: 20200409
  Serious: No
  Sender: FDA-Public Use
  Company Number: US-LEADING PHARMA LLC-US-2020LEASPO00002

PATIENT

DRUGS (7)
  1. CBD OIL [Concomitant]
     Active Substance: CANNABIDIOL\HERBALS
  2. VITAMIN D3 [Concomitant]
     Active Substance: CHOLECALCIFEROL
  3. LORAZEPAM TABLETS USP [Suspect]
     Active Substance: LORAZEPAM
  4. ACICLOVIR [Concomitant]
     Active Substance: ACYCLOVIR
  5. VITAMIN C [Concomitant]
     Active Substance: ASCORBIC ACID
  6. MAGNESIUM MALATE. [Concomitant]
     Active Substance: MAGNESIUM MALATE
  7. FISH OIL [Concomitant]
     Active Substance: FISH OIL

REACTIONS (10)
  - Wrong technique in product usage process [None]
  - Muscle spasms [Recovered/Resolved]
  - Gait disturbance [Recovered/Resolved]
  - Pain in extremity [Not Recovered/Not Resolved]
  - Muscle spasms [Not Recovered/Not Resolved]
  - Pain in extremity [Recovered/Resolved]
  - Back pain [Not Recovered/Not Resolved]
  - Gait disturbance [Not Recovered/Not Resolved]
  - Product use in unapproved indication [None]
  - Back pain [Recovered/Resolved]

NARRATIVE: CASE EVENT DATE: 201806
